FAERS Safety Report 10163606 (Version 1)
Quarter: 2014Q2

REPORT INFORMATION
  Report Type: Spontaneous
  Country: US (occurrence: US)
  Receive Date: 20140509
  Receipt Date: 20140509
  Transmission Date: 20141212
  Serious: Yes (Death, Hospitalization, Other)
  Sender: FDA-Public Use
  Company Number: PHHY2014US054138

PATIENT
  Age: 63 Year
  Sex: Female

DRUGS (5)
  1. CARBOPLATIN [Suspect]
     Indication: INVASIVE DUCTAL BREAST CARCINOMA
  2. TAXOTERE [Suspect]
     Indication: INVASIVE DUCTAL BREAST CARCINOMA
  3. HERCEPTIN [Suspect]
     Indication: INVASIVE DUCTAL BREAST CARCINOMA
  4. HYALGAN [Suspect]
     Indication: OSTEOARTHRITIS
  5. NSAID^S [Concomitant]
     Indication: ARTHRALGIA

REACTIONS (10)
  - Necrotising fasciitis [Fatal]
  - Oedema peripheral [Fatal]
  - Blister [Fatal]
  - Erythema [Fatal]
  - Pain in extremity [Fatal]
  - Multi-organ failure [Unknown]
  - Septic shock [Unknown]
  - General physical health deterioration [Unknown]
  - Sleep disorder [Unknown]
  - Immunosuppression [Unknown]
